FAERS Safety Report 20969640 (Version 2)
Quarter: 2022Q2

REPORT INFORMATION
  Report Type: Other
  Country: US (occurrence: US)
  Receive Date: 20220616
  Receipt Date: 20220628
  Transmission Date: 20220720
  Serious: No
  Sender: FDA-Public Use
  Company Number: US-MAYNE PHARMA-2022MYN000788

PATIENT

DRUGS (1)
  1. CLOZAPINE [Suspect]
     Active Substance: CLOZAPINE
     Indication: Product used for unknown indication
     Route: 065

REACTIONS (1)
  - No adverse event [Unknown]

NARRATIVE: CASE EVENT DATE: 20220505
